FAERS Safety Report 4555626-1 (Version None)
Quarter: 2005Q1

REPORT INFORMATION
  Report Type: 
  Country: None (occurrence: None)
  Receive Date: 20050111
  Receipt Date: 20040915
  Transmission Date: 20050727
  Serious: No
  Sender: FDA-Public Use
  Company Number: 2004S1000100

PATIENT
  Age: 63 Year
  Sex: Female
  Weight: 77 kg

DRUGS (8)
  1. CUBICIN [Suspect]
     Indication: BURSITIS
     Dosage: 500 MG;Q24H;IV
     Route: 042
     Dates: start: 20040502
  2. CUBICIN [Suspect]
     Indication: SEPTIC ARTHRITIS STAPHYLOCOCCAL
     Dosage: 500 MG;Q24H;IV
     Route: 042
     Dates: start: 20040502
  3. VANCOMYCIN [Concomitant]
  4. METOCLOPRAMIDE [Concomitant]
  5. MAXIPIME [Concomitant]
  6. RIFAMPIN [Concomitant]
  7. VANCOMYCIN [Concomitant]
  8. CANCIDAS [Concomitant]

REACTIONS (1)
  - LEUKOPENIA [None]
